FAERS Safety Report 5257063-3 (Version None)
Quarter: 2007Q1

REPORT INFORMATION
  Report Type: 
  Country: None (occurrence: None)
  Receive Date: 20070305
  Receipt Date: 20070305
  Transmission Date: 20070707
  Serious: Yes (Life-Threatening, Hospitalization, Other)
  Sender: FDA-Public Use
  Company Number: None

PATIENT
  Sex: Female
  Weight: 63.05 kg

DRUGS (2)
  1. FLEXERIL [Suspect]
     Indication: ARTHRALGIA
     Dosage: 1 TO 2 TIMES A DAY   DAILY
     Dates: start: 20000101, end: 20060511
  2. FLEXERIL [Suspect]
     Indication: MUSCLE RELAXANT THERAPY
     Dosage: 1 TO 2 TIMES A DAY   DAILY
     Dates: start: 20000101, end: 20060511

REACTIONS (2)
  - ATRIAL FIBRILLATION [None]
  - TACHYCARDIA [None]
